FAERS Safety Report 7503376-1 (Version None)
Quarter: 2011Q2

REPORT INFORMATION
  Report Type: 
  Country: None (occurrence: None)
  Receive Date: 20110525
  Receipt Date: 20110214
  Transmission Date: 20111010
  Serious: Yes (Other)
  Sender: FDA-Public Use
  Company Number: A0913539A

PATIENT
  Sex: Female
  Weight: 60 kg

DRUGS (14)
  1. XELODA [Concomitant]
     Dosage: 800MG TWICE PER DAY
     Route: 048
  2. OXYCONTIN [Concomitant]
     Dosage: 40MG THREE TIMES PER DAY
     Route: 065
  3. PANTOLOC [Concomitant]
     Dosage: 40MG TWICE PER DAY
     Route: 065
  4. CLONAZEPAM [Concomitant]
     Dosage: .5MG PER DAY
     Route: 065
  5. VITAMIN B-12 [Concomitant]
     Route: 065
  6. OXYCODONE HCL [Concomitant]
     Route: 065
  7. TRAZODONE HCL [Concomitant]
     Dosage: 250MG AT NIGHT
     Route: 065
  8. VITAMINS [Concomitant]
     Route: 065
  9. BENZYDAMINE [Concomitant]
     Dosage: .15%DS TWICE PER DAY
     Route: 065
  10. KETOROLAC TROMETHAMINE [Concomitant]
     Dosage: 10MG TWICE PER DAY
     Route: 065
  11. GABAPENTIN [Concomitant]
     Dosage: 300MG THREE TIMES PER DAY
     Route: 065
  12. TYKERB [Suspect]
     Dosage: 1000MG PER DAY
     Route: 048
     Dates: start: 20100702, end: 20110428
  13. ASPIRIN [Concomitant]
     Route: 065
  14. HERCEPTIN [Concomitant]
     Dosage: 370MG EVERY 3 WEEKS
     Route: 065

REACTIONS (4)
  - KLEBSIELLA TEST POSITIVE [None]
  - CYSTITIS [None]
  - URINARY TRACT INFECTION [None]
  - NEOPLASM MALIGNANT [None]
